FAERS Safety Report 17693131 (Version 1)
Quarter: 2020Q2

REPORT INFORMATION
  Report Type: Spontaneous
  Country: US (occurrence: US)
  Receive Date: 20200421
  Receipt Date: 20200421
  Transmission Date: 20200714
  Serious: No
  Sender: FDA-Public Use
  Company Number: None

PATIENT
  Age: 60 Year
  Sex: Female
  Weight: 119.29 kg

DRUGS (2)
  1. TALTZ [Suspect]
     Active Substance: IXEKIZUMAB
     Indication: PSORIATIC ARTHROPATHY
     Dosage: OTHER DOSE:80MG (1 SYRINGE);?AS DIRECTED
     Route: 058
     Dates: start: 201907
  2. TALTZ [Suspect]
     Active Substance: IXEKIZUMAB
     Indication: PSORIASIS
     Dosage: OTHER DOSE:80MG (1 SYRINGE);?AS DIRECTED
     Route: 058
     Dates: start: 201907

REACTIONS (1)
  - Viral infection [None]
